FAERS Safety Report 15867154 (Version 2)
Quarter: 2019Q1

REPORT INFORMATION
  Report Type: Spontaneous
  Country: FR (occurrence: FR)
  Receive Date: 20190125
  Receipt Date: 20190228
  Transmission Date: 20190417
  Serious: Yes (Hospitalization, Other)
  Sender: FDA-Public Use
  Company Number: FR-TAKEDA-2018TUS032889

PATIENT
  Sex: Male

DRUGS (2)
  1. ICLUSIG [Suspect]
     Active Substance: PONATINIB
     Dosage: 30 MILLIGRAM
     Route: 048
     Dates: start: 20181106
  2. ICLUSIG [Suspect]
     Active Substance: PONATINIB
     Indication: CHRONIC MYELOID LEUKAEMIA
     Dosage: 30 MILLIGRAM
     Route: 048
     Dates: end: 20181105

REACTIONS (3)
  - Respiratory distress [Recovered/Resolved]
  - Pulmonary oedema [Recovered/Resolved]
  - Atrial fibrillation [Recovered/Resolved]

NARRATIVE: CASE EVENT DATE: 20181105
